FAERS Safety Report 8171632-2 (Version None)
Quarter: 2012Q1

REPORT INFORMATION
  Report Type: 
  Country: None (occurrence: None)
  Receive Date: 20120104
  Receipt Date: 20111004
  Transmission Date: 20120608
  Serious: No
  Sender: FDA-Public Use
  Company Number: 2011HGS-002610

PATIENT
  Age: 44 Year
  Sex: Female
  Weight: 65.7716 kg

DRUGS (15)
  1. LORATADINE [Concomitant]
  2. BENLYSTA [Suspect]
     Indication: SYSTEMIC LUPUS ERYTHEMATOSUS
     Dosage: 10 MG/KG, 1 IN 28 D, INTRAVENOUS DRIP
     Route: 041
     Dates: start: 20110610
  3. PLAQUENIL [Concomitant]
  4. ATELVIA (RISEDRONATE SODIUM) [Concomitant]
  5. IRON (IRON) [Concomitant]
  6. PREDNISONE TAB [Concomitant]
  7. PROTONIX [Concomitant]
  8. LUNESTA [Concomitant]
  9. LASIX [Concomitant]
  10. NORFLEX [Concomitant]
  11. MVI (MVI) (VITAMIN NOS) [Concomitant]
  12. MERCAPTOPURINE [Concomitant]
  13. DICLOFENAC XR (DICLOFENAC) [Concomitant]
  14. FOLIC ACID [Concomitant]
  15. LATANOPROST [Concomitant]

REACTIONS (2)
  - BONE PAIN [None]
  - NAUSEA [None]
